FAERS Safety Report 18190158 (Version 2)
Quarter: 2020Q3

REPORT INFORMATION
  Report Type: Other
  Country: CN (occurrence: CN)
  Receive Date: 20200825
  Receipt Date: 20200925
  Transmission Date: 20201103
  Serious: Yes (Other)
  Sender: FDA-Public Use
  Company Number: CN-ROCHE-2458937

PATIENT
  Age: 54 Year
  Sex: Male
  Weight: 46 kg

DRUGS (1)
  1. AVASTIN [Suspect]
     Active Substance: BEVACIZUMAB
     Indication: NON-SMALL CELL LUNG CANCER
     Route: 041
     Dates: start: 20170519, end: 20200729

REACTIONS (4)
  - Blood pressure increased [Unknown]
  - Renal impairment [Unknown]
  - Nasopharyngitis [Unknown]
  - Protein urine present [Unknown]

NARRATIVE: CASE EVENT DATE: 20191027
